FAERS Safety Report 10776114 (Version 1)
Quarter: 2015Q1

REPORT INFORMATION
  Report Type: Spontaneous
  Country: US (occurrence: None)
  Receive Date: 20150205
  Receipt Date: 20150205
  Transmission Date: 20150721
  Serious: Yes (Disabling, Other)
  Sender: FDA-Public Use
  Company Number: None

PATIENT
  Age: 66 Year
  Sex: Male
  Weight: 90.72 kg

DRUGS (1)
  1. PENICILLIN VK [Suspect]
     Active Substance: PENICILLIN V POTASSIUM
     Indication: TOOTH ABSCESS

REACTIONS (9)
  - Drug hypersensitivity [None]
  - Abdominal distension [None]
  - Blood pressure increased [None]
  - Asthenia [None]
  - Body temperature increased [None]
  - Flatulence [None]
  - Movement disorder [None]
  - Musculoskeletal pain [None]
  - Pain [None]

NARRATIVE: CASE EVENT DATE: 20150129
